FAERS Safety Report 10247533 (Version 1)
Quarter: 2014Q1

REPORT INFORMATION
  Report Type: Spontaneous
  Country: US (occurrence: None)
  Receive Date: 20140306
  Receipt Date: 20140306
  Transmission Date: 20141002
  Serious: Yes (Hospitalization, Other)
  Sender: FDA-Public Use
  Company Number: 163-21880-13043826

PATIENT
  Age: 69 Year
  Sex: Female

DRUGS (6)
  1. REVLIMID (LENALIDOMIDE) (10 MILLIGRAM, CAPSULES) [Suspect]
     Indication: PLASMA CELL MYELOMA
     Dosage: 10 MG , 21 IN 28 D, PO
     Route: 048
     Dates: start: 20130313, end: 20130506
  2. DEXAMETHASONE (DEXAMETHASONE) (UNKNOWN) [Suspect]
     Indication: PRODUCT USED FOR UNKNOWN INDICATION
     Dates: start: 20130313
  3. SIMVASTATIN [Concomitant]
  4. METOPROLOL [Concomitant]
  5. AMLODIPINE [Concomitant]
  6. BENAZEPRIL [Concomitant]

REACTIONS (7)
  - Pneumonia [None]
  - Dyspnoea [None]
  - Pancytopenia [None]
  - Chest pain [None]
  - Tremor [None]
  - Balance disorder [None]
  - Blood glucose abnormal [None]
